FAERS Safety Report 8571905-5 (Version None)
Quarter: 2012Q3

REPORT INFORMATION
  Report Type: 
  Country: None (occurrence: None)
  Receive Date: 20120806
  Receipt Date: 20120731
  Transmission Date: 20120928
  Serious: Yes (Hospitalization)
  Sender: FDA-Public Use
  Company Number: US-JNJFOC-20120800633

PATIENT
  Sex: Male
  Weight: 96.62 kg

DRUGS (1)
  1. ELMIRON [Suspect]
     Indication: CYSTITIS INTERSTITIAL
     Dosage: 100MG, 2 TWICE DAILY
     Route: 048
     Dates: start: 20070101

REACTIONS (3)
  - ARTERIAL DISORDER [None]
  - BLOOD CHOLESTEROL INCREASED [None]
  - DRUG PRESCRIBING ERROR [None]
